FAERS Safety Report 21193085 (Version 2)
Quarter: 2022Q3

REPORT INFORMATION
  Report Type: Spontaneous
  Country: LV (occurrence: LV)
  Receive Date: 20220810
  Receipt Date: 20220910
  Transmission Date: 20221026
  Serious: Yes (Death, Hospitalization, Other)
  Sender: FDA-Public Use
  Company Number: LV-BAYER-2022P009967

PATIENT
  Age: 72 Year
  Sex: Female

DRUGS (4)
  1. XARELTO [Suspect]
     Active Substance: RIVAROXABAN
     Indication: Product used for unknown indication
     Dosage: 20 UNK
     Route: 048
  2. AMLODIPINE [Concomitant]
     Active Substance: AMLODIPINE BESYLATE
  3. VALSARTAN [Concomitant]
     Active Substance: VALSARTAN
  4. HYDROCHLOROTHIAZIDE [Concomitant]
     Active Substance: HYDROCHLOROTHIAZIDE

REACTIONS (6)
  - Hypertension [Fatal]
  - Atrial fibrillation [Fatal]
  - Chronic kidney disease [Fatal]
  - Cardiac failure [Fatal]
  - Cerebrovascular accident [Fatal]
  - Carotid artery occlusion [Unknown]

NARRATIVE: CASE EVENT DATE: 20220613
